FAERS Safety Report 17650797 (Version 1)
Quarter: 2020Q2

REPORT INFORMATION
  Report Type: Spontaneous
  Country: US (occurrence: US)
  Receive Date: 20200409
  Receipt Date: 20200409
  Transmission Date: 20200713
  Serious: Yes (Other)
  Sender: FDA-Public Use
  Company Number: US-PFIZER INC-2020145022

PATIENT

DRUGS (1)
  1. GENTAMICIN SULFATE. [Suspect]
     Active Substance: GENTAMICIN SULFATE
     Dosage: 450 MG, UNK (69 ML OF GENTAMICIN HAD INFUSED)
     Route: 064

REACTIONS (2)
  - Exposure during pregnancy [Unknown]
  - Apgar score abnormal [Unknown]
